FAERS Safety Report 8161136-5 (Version None)
Quarter: 2012Q1

REPORT INFORMATION
  Report Type: 
  Country: None (occurrence: None)
  Receive Date: 20120224
  Receipt Date: 20120221
  Transmission Date: 20120608
  Serious: No
  Sender: FDA-Public Use
  Company Number: US-PFIZER INC-2012046791

PATIENT
  Sex: Female
  Weight: 65.76 kg

DRUGS (1)
  1. DEPO-PROVERA [Suspect]
     Indication: CONTRACEPTION
     Dosage: 150 MG, THREE TIMES A MONTH
     Dates: start: 20000310

REACTIONS (5)
  - WEIGHT INCREASED [None]
  - INAPPROPRIATE SCHEDULE OF DRUG ADMINISTRATION [None]
  - WEIGHT DECREASED [None]
  - VISUAL IMPAIRMENT [None]
  - PIRIFORMIS SYNDROME [None]
